FAERS Safety Report 9338166 (Version 1)
Quarter: 2013Q2

REPORT INFORMATION
  Report Type: Spontaneous
  Country: US (occurrence: None)
  Receive Date: 20130605
  Receipt Date: 20130605
  Transmission Date: 20140414
  Serious: Yes (Other)
  Sender: FDA-Public Use
  Company Number: None

PATIENT
  Sex: Male
  Weight: 23.6 kg

DRUGS (2)
  1. TRILEPTAL [Suspect]
     Route: 048
     Dates: start: 2007
  2. TRILEPTAL [Suspect]
     Route: 048
     Dates: start: 2007

REACTIONS (2)
  - Drug effect decreased [None]
  - Product substitution issue [None]
